FAERS Safety Report 5324174-3 (Version None)
Quarter: 2007Q2

REPORT INFORMATION
  Report Type: 
  Country: None (occurrence: None)
  Receive Date: 20070514
  Receipt Date: 20070502
  Transmission Date: 20071010
  Serious: Yes (Life-Threatening, Hospitalization)
  Sender: FDA-Public Use
  Company Number: NL-ELI_LILLY_AND_COMPANY-NL200705001054

PATIENT
  Age: 56 Year
  Sex: Female
  Weight: 65 kg

DRUGS (2)
  1. ZYPREXA [Suspect]
     Indication: MANIA
     Dosage: 5 MG, UNK
     Dates: start: 20041224, end: 20070420
  2. PRIADEL [Concomitant]
     Dosage: 400 MG, DAILY (1/D)
     Dates: start: 20070428

REACTIONS (1)
  - PNEUMONIA [None]
